FAERS Safety Report 17580835 (Version 10)
Quarter: 2020Q4

REPORT INFORMATION
  Report Type: Spontaneous
  Country: US (occurrence: US)
  Receive Date: 20200325
  Receipt Date: 20201211
  Transmission Date: 20210113
  Serious: No
  Sender: FDA-Public Use
  Company Number: US-DSJP-DSU-2020-108181

PATIENT
  Sex: Male

DRUGS (3)
  1. TRAZODONE [Concomitant]
     Active Substance: TRAZODONE HYDROCHLORIDE
     Indication: PRODUCT USED FOR UNKNOWN INDICATION
     Dosage: UNK
     Route: 065
  2. TURALIO [Suspect]
     Active Substance: PEXIDARTINIB HYDROCHLORIDE
     Indication: SYNOVITIS
     Dosage: 200MG ODD DAYS, 400MG EVEN DAYS
     Route: 048
     Dates: start: 20200227
  3. TURALIO [Suspect]
     Active Substance: PEXIDARTINIB HYDROCHLORIDE
     Dosage: 200 MG, QD
     Route: 048

REACTIONS (16)
  - Pyrexia [Recovered/Resolved]
  - Spinal pain [Recovered/Resolved]
  - Dysuria [Recovered/Resolved]
  - Fatigue [Recovered/Resolved]
  - Chromaturia [Recovered/Resolved]
  - Neutrophil count decreased [Not Recovered/Not Resolved]
  - Urinary tract infection [Recovered/Resolved]
  - Red blood cell count increased [Not Recovered/Not Resolved]
  - Product dose omission issue [Recovered/Resolved]
  - Treatment noncompliance [Unknown]
  - Dehydration [Recovered/Resolved]
  - Hair colour changes [Recovered/Resolved]
  - Arthralgia [Recovered/Resolved]
  - Product dose omission issue [Not Recovered/Not Resolved]
  - Decreased appetite [Recovered/Resolved]
  - Back pain [Recovered/Resolved]

NARRATIVE: CASE EVENT DATE: 2020
